FAERS Safety Report 8885263 (Version 3)
Quarter: 2012Q4

REPORT INFORMATION
  Report Type: Report from Study
  Country: DE (occurrence: DE)
  Receive Date: 20121101
  Receipt Date: 20121206
  Transmission Date: 20130627
  Serious: Yes (Life-Threatening, Hospitalization)
  Sender: FDA-Public Use
  Company Number: DE-BAYER-2012-112894

PATIENT
  Age: 48 Year
  Sex: Male
  Weight: 97.05 kg

DRUGS (5)
  1. SORAFENIB [Suspect]
     Indication: ACUTE MYELOID LEUKEMIA
     Dosage: 2 DF, BID
     Dates: start: 20120724, end: 20121019
  2. VORICONAZOLE [Concomitant]
     Indication: FUNGAL INFECTION
     Dosage: 200 mg, BID
     Route: 048
     Dates: start: 20121016, end: 20121023
  3. 5-FLUOROURACIL [Concomitant]
     Indication: COLORECTAL CARCINOMA
     Dosage: daily dose of 400 and 2400 mg/m2
     Route: 042
     Dates: start: 20121114, end: 20121128
  4. OXALIPLATIN [Concomitant]
     Indication: COLORECTAL CARCINOMA
     Dosage: daily dose of 85 mg/m2
     Dates: start: 20121114, end: 20121128
  5. BEVACIZUMAB [Concomitant]
     Indication: COLORECTAL CARCINOMA
     Dosage: daily dose of 5 mg/kg
     Dates: start: 20121114, end: 20121128

REACTIONS (3)
  - Hepatic cancer [Not Recovered/Not Resolved]
  - Anaemia [Not Recovered/Not Resolved]
  - Fatigue [Not Recovered/Not Resolved]
